FAERS Safety Report 24860318 (Version 1)
Quarter: 2025Q1

REPORT INFORMATION
  Report Type: Spontaneous
  Country: CA (occurrence: CA)
  Receive Date: 20250120
  Receipt Date: 20250120
  Transmission Date: 20250409
  Serious: Yes (Other)
  Sender: ASTELLAS
  Company Number: CA-ASTELLAS-2024US002025

PATIENT
  Age: 45 Year
  Sex: Female

DRUGS (16)
  1. TACROLIMUS [Interacting]
     Active Substance: TACROLIMUS
     Indication: Immunosuppressant drug therapy
     Route: 065
  2. TACROLIMUS [Interacting]
     Active Substance: TACROLIMUS
     Route: 065
  3. TACROLIMUS [Interacting]
     Active Substance: TACROLIMUS
     Dosage: UNK, TWICE DAILY
     Route: 065
  4. TACROLIMUS [Interacting]
     Active Substance: TACROLIMUS
     Dosage: 4 MG, ONCE DAILY
     Route: 065
  5. TACROLIMUS [Interacting]
     Active Substance: TACROLIMUS
     Dosage: 4 MG, TWICE DAILY
     Route: 065
  6. TACROLIMUS [Interacting]
     Active Substance: TACROLIMUS
     Dosage: 2 MG, ONCE DAILY
     Route: 065
  7. TACROLIMUS [Interacting]
     Active Substance: TACROLIMUS
     Dosage: 3 MG, TWICE DAILY
     Route: 065
  8. TACROLIMUS [Interacting]
     Active Substance: TACROLIMUS
     Indication: Immunosuppressant drug therapy
     Dosage: ON D +5, +6 AND +7
     Route: 065
  9. TACROLIMUS [Interacting]
     Active Substance: TACROLIMUS
     Dosage: ON D +8 AND +9
     Route: 065
  10. TACROLIMUS [Interacting]
     Active Substance: TACROLIMUS
     Dosage: ON D +10 IN MORNING
     Route: 065
  11. TACROLIMUS [Interacting]
     Active Substance: TACROLIMUS
     Dosage: ON D +11 IN EVENING
     Route: 065
  12. TACROLIMUS [Interacting]
     Active Substance: TACROLIMUS
     Dosage: ON D +12
     Route: 065
  13. TACROLIMUS [Interacting]
     Active Substance: TACROLIMUS
     Dosage: ON D +14 5 MG IN MORNING AND 4 MG IN EVENING
     Route: 065
  14. TACROLIMUS [Interacting]
     Active Substance: TACROLIMUS
     Dosage: ON D +18, 5 MG IN MORNING AND 4.5 MG IN EVENING
     Route: 065
  15. NIRMATRELVIR\RITONAVIR [Interacting]
     Active Substance: NIRMATRELVIR\RITONAVIR
     Indication: COVID-19
     Dosage: NIRMATRELVIR 150MG; RITONAVIR 100MG 2 DF, TWICE DAILY
     Route: 048
  16. MYCOPHENOLATE SODIUM [Concomitant]
     Active Substance: MYCOPHENOLATE SODIUM
     Indication: Immunosuppressant drug therapy
     Dosage: 360 MG, TWICE DAILY (FREQ 12 H)
     Route: 065

REACTIONS (3)
  - Blood creatinine increased [Recovered/Resolved]
  - Immunosuppressant drug level increased [Recovered/Resolved]
  - Drug interaction [Recovered/Resolved]
